FAERS Safety Report 24444224 (Version 2)
Quarter: 2024Q4

REPORT INFORMATION
  Report Type: Report from Study
  Country: US (occurrence: US)
  Receive Date: 20241016
  Receipt Date: 20241017
  Transmission Date: 20250115
  Serious: No
  Sender: ROCHE
  Company Number: US-ROCHE-2733060

PATIENT
  Age: 35 Year
  Sex: Female
  Weight: 68.04 kg

DRUGS (2)
  1. RITUXAN [Suspect]
     Active Substance: RITUXIMAB
     Indication: Multiple sclerosis
     Dosage: 250ML OF 0.9%
     Route: 041
     Dates: start: 20190726, end: 20210722
  2. RITUXAN [Suspect]
     Active Substance: RITUXIMAB
     Indication: Demyelination

REACTIONS (3)
  - Off label use [Unknown]
  - No adverse event [Unknown]
  - Maternal exposure before pregnancy [Unknown]

NARRATIVE: CASE EVENT DATE: 20190726
